FAERS Safety Report 4562210-2 (Version None)
Quarter: 2005Q1

REPORT INFORMATION
  Report Type: 
  Country: None (occurrence: None)
  Receive Date: 20050121
  Receipt Date: 20041206
  Transmission Date: 20050727
  Serious: Yes (Death)
  Sender: FDA-Public Use
  Company Number: 004-041206

PATIENT
  Sex: Female
  Weight: 113.3993 kg

DRUGS (1)
  1. BETASEPT 4% CHLORHEXIDINE GLUCONATE [Suspect]
     Indication: PREOPERATIVE CARE
     Dosage: TOPICAL
     Route: 061
     Dates: end: 20041104

REACTIONS (1)
  - MEDICATION ERROR [None]
